FAERS Safety Report 9003129 (Version 1)
Quarter: 2013Q1

REPORT INFORMATION
  Report Type: Spontaneous
  Country: GB (occurrence: GB)
  Receive Date: 20130108
  Receipt Date: 20130108
  Transmission Date: 20140127
  Serious: Yes (Life-Threatening, Hospitalization)
  Sender: FDA-Public Use
  Company Number: GB-TEVA-378892ISR

PATIENT
  Age: 34 Year
  Sex: Female

DRUGS (12)
  1. SERTRALINE [Suspect]
     Dosage: 100 MILLIGRAM DAILY;
  2. ONDANSETRON [Suspect]
     Dosage: 24 MILLIGRAM DAILY; 8MG BD-TDS
     Route: 048
  3. SUMATRIPTAN [Suspect]
     Dosage: 12 MILLIGRAM DAILY; SUMATRIPTAN 6MG/0.5ML SOLUTION FOR INJECTION PRE-FILLED?SYRINGES WITH
     Route: 058
  4. PREGABALIN [Suspect]
     Dosage: 300 MILLIGRAM DAILY;
     Route: 048
  5. DOMPERIDONE [Suspect]
     Dosage: 30 MILLIGRAM DAILY; 10MG TDS
     Route: 048
  6. OMEPRAZOLE [Concomitant]
     Dosage: 20 MILLIGRAM DAILY;
     Route: 048
  7. NAPROXEN [Concomitant]
     Dosage: 1250 MILLIGRAM DAILY;
     Route: 048
  8. LORATADINE [Concomitant]
     Dosage: 10 MILLIGRAM DAILY;
     Route: 048
  9. BACLOFEN [Concomitant]
     Dosage: 50 MILLIGRAM DAILY;
     Route: 048
  10. LAMOTRIGINE [Concomitant]
     Dosage: 50 MILLIGRAM DAILY;
     Route: 048
     Dates: start: 20121203
  11. DIHYDROERGOTAMINE [Concomitant]
     Dosage: UNKNOWN
     Route: 042
  12. VERAPAMIL [Concomitant]
     Dosage: 1080 MILLIGRAM DAILY; DRUG STOPPED ONE WEEK AGO.

REACTIONS (2)
  - Atrioventricular block complete [Not Recovered/Not Resolved]
  - Circulatory collapse [Unknown]
